FAERS Safety Report 24607294 (Version 1)
Quarter: 2024Q4

REPORT INFORMATION
  Report Type: Report from Study
  Country: CN (occurrence: CN)
  Receive Date: 20241112
  Receipt Date: 20241112
  Transmission Date: 20250115
  Serious: Yes (Hospitalization, Other)
  Sender: JOHNSON AND JOHNSON
  Company Number: CN-JNJFOC-20241115048

PATIENT
  Age: 80 Year
  Sex: Male
  Weight: 78 kg

DRUGS (33)
  1. ABIRATERONE ACETATE [Suspect]
     Active Substance: ABIRATERONE ACETATE
     Indication: Hormone-refractory prostate cancer
     Dosage: THE LAST DOSE WAS ADMINISTERED ON 12-OCT-2021
     Route: 048
     Dates: start: 20210611, end: 20211012
  2. ABIRATERONE ACETATE [Suspect]
     Active Substance: ABIRATERONE ACETATE
     Route: 048
     Dates: start: 20211104
  3. PRUXELUTAMIDE [Suspect]
     Active Substance: PRUXELUTAMIDE
     Indication: Hormone-refractory prostate cancer
     Dosage: THE LAST DOSE WAS ADMINISTERED ON 12-OCT-2021
     Route: 048
     Dates: start: 20210611, end: 20211012
  4. PRUXELUTAMIDE [Suspect]
     Active Substance: PRUXELUTAMIDE
     Route: 048
     Dates: start: 20211104
  5. PREDNISONE ACETATE [Suspect]
     Active Substance: PREDNISONE ACETATE
     Indication: Prophylaxis
     Route: 048
     Dates: start: 20210611, end: 20211012
  6. PREDNISONE ACETATE [Suspect]
     Active Substance: PREDNISONE ACETATE
     Route: 048
     Dates: start: 20211104
  7. FERRIC POLYSACCHARIDE COMPLEX [Concomitant]
     Active Substance: FERRIC POLYSACCHARIDE COMPLEX
     Indication: Anaemia
     Route: 048
     Dates: start: 20210420
  8. CLOPIDOGREL BISULFATE [Concomitant]
     Active Substance: CLOPIDOGREL BISULFATE
     Indication: Coronary artery disease
     Route: 048
     Dates: start: 2014
  9. SILODOSIN [Concomitant]
     Active Substance: SILODOSIN
     Indication: Pollakiuria
     Route: 048
     Dates: start: 20210519
  10. EPRISTERIDE [Concomitant]
     Active Substance: EPRISTERIDE
     Indication: Pollakiuria
     Route: 048
     Dates: start: 20210421, end: 20210803
  11. EPRISTERIDE [Concomitant]
     Active Substance: EPRISTERIDE
     Route: 048
     Dates: start: 20210804
  12. CLONAZEPAM [Concomitant]
     Active Substance: CLONAZEPAM
     Indication: Insomnia
     Route: 048
     Dates: start: 2014
  13. ESTAZOLAM [Concomitant]
     Active Substance: ESTAZOLAM
     Indication: Insomnia
     Route: 048
     Dates: start: 2014
  14. POLYETHYLENE GLYCOL ELECTROLYTES [Concomitant]
     Indication: Anaemia
     Route: 048
     Dates: start: 20211009, end: 20211021
  15. POLYETHYLENE GLYCOL ELECTROLYTES [Concomitant]
     Indication: Constipation
  16. PITAVASTATIN CALCIUM [Concomitant]
     Active Substance: PITAVASTATIN CALCIUM
     Indication: Prophylaxis
     Route: 048
     Dates: start: 2014
  17. DOXAZOSIN MESYLATE [Concomitant]
     Active Substance: DOXAZOSIN MESYLATE
     Indication: Pollakiuria
  18. LANSOPRAZOLE [Concomitant]
     Active Substance: LANSOPRAZOLE
     Indication: Prophylaxis
     Route: 042
  19. VONOPRAZAN FUMARATE [Concomitant]
     Active Substance: VONOPRAZAN FUMARATE
     Indication: Pharyngitis
     Route: 048
  20. HYDROCHLOROTHIAZIDE [Concomitant]
     Active Substance: HYDROCHLOROTHIAZIDE
     Indication: Oedema peripheral
  21. DIOSMIN [Concomitant]
     Active Substance: DIOSMIN
     Indication: Oedema peripheral
     Route: 048
  22. ASPIRIN [Concomitant]
     Active Substance: ASPIRIN
     Indication: Coronary artery disease
     Route: 048
     Dates: start: 20211009, end: 20211015
  23. CALCIUM DOBESILATE [Concomitant]
     Active Substance: CALCIUM DOBESILATE
     Indication: Oedema peripheral
     Route: 048
  24. LACTULOSE [Concomitant]
     Active Substance: LACTULOSE
     Indication: Constipation
     Route: 048
  25. ISOSORBIDE MONONITRATE [Concomitant]
     Active Substance: ISOSORBIDE MONONITRATE
     Indication: Coronary artery disease
     Route: 048
     Dates: start: 20211020
  26. ROSUVASTATIN CALCIUM [Concomitant]
     Active Substance: ROSUVASTATIN CALCIUM
     Indication: Coronary artery disease
     Route: 048
  27. ROSUVASTATIN CALCIUM [Concomitant]
     Active Substance: ROSUVASTATIN CALCIUM
     Indication: Hypertriglyceridaemia
  28. METHYLCOBALAMIN [Concomitant]
     Active Substance: METHYLCOBALAMIN
     Indication: Hypoaesthesia
     Dates: start: 20211021
  29. FLUNARIZINE HYDROCHLORIDE [Concomitant]
     Active Substance: FLUNARIZINE HYDROCHLORIDE
     Indication: Coronary artery disease
     Route: 048
     Dates: start: 20211027, end: 20211115
  30. CILOSTAZOL [Concomitant]
     Active Substance: CILOSTAZOL
     Indication: Coronary artery disease
     Route: 048
  31. BERAPROST SODIUM [Concomitant]
     Active Substance: BERAPROST SODIUM
     Indication: Coronary artery disease
     Route: 048
     Dates: start: 20211028, end: 20211114
  32. DIPHENHYDRAMINE [Concomitant]
     Active Substance: DIPHENHYDRAMINE
     Indication: Prophylaxis
     Route: 030
     Dates: start: 20211022, end: 20211023
  33. DIPHENHYDRAMINE [Concomitant]
     Active Substance: DIPHENHYDRAMINE
     Route: 030
     Dates: start: 20211025, end: 20211101

REACTIONS (24)
  - Cataract [Not Recovered/Not Resolved]
  - Muscular weakness [Recovered/Resolved]
  - Oedema peripheral [Recovering/Resolving]
  - Pneumonia [Not Recovered/Not Resolved]
  - Hypokalaemia [Recovered/Resolved]
  - Pain in extremity [Recovered/Resolved]
  - Blood homocysteine increased [Recovered/Resolved]
  - Conjunctivitis [Not Recovered/Not Resolved]
  - Neutrophil count decreased [Recovered/Resolved]
  - Abdominal pain upper [Not Recovered/Not Resolved]
  - White blood cell count decreased [Recovered/Resolved]
  - Hyperhidrosis [Not Recovered/Not Resolved]
  - Electrocardiogram T wave abnormal [Recovered/Resolved]
  - Proteinuria [Not Recovered/Not Resolved]
  - Hypoalbuminaemia [Recovered/Resolved]
  - Hyperglycaemia [Not Recovered/Not Resolved]
  - Pharyngitis [Not Recovered/Not Resolved]
  - Sinus bradycardia [Recovered/Resolved]
  - Lymphocyte count decreased [Not Recovered/Not Resolved]
  - Anaemia [Not Recovered/Not Resolved]
  - Hypernatraemia [Recovered/Resolved]
  - Hypertriglyceridaemia [Not Recovered/Not Resolved]
  - Osteoporosis [Not Recovered/Not Resolved]
  - Hypercholesterolaemia [Recovered/Resolved]

NARRATIVE: CASE EVENT DATE: 20210708
